FAERS Safety Report 18795598 (Version 1)
Quarter: 2021Q1

REPORT INFORMATION
  Report Type: Spontaneous
  Country: CA (occurrence: CA)
  Receive Date: 20210127
  Receipt Date: 20210127
  Transmission Date: 20210419
  Serious: Yes (Other)
  Sender: FDA-Public Use
  Company Number: CA-GLAXOSMITHKLINE-CA2021AMR013865

PATIENT
  Age: 63 Year
  Sex: Female

DRUGS (1)
  1. SALBUTAMOL [Suspect]
     Active Substance: ALBUTEROL
     Indication: PRODUCT USED FOR UNKNOWN INDICATION
     Dosage: UNK

REACTIONS (9)
  - Oral discomfort [Unknown]
  - Throat tightness [Unknown]
  - Oral pain [Unknown]
  - Oropharyngeal pain [Unknown]
  - Pruritus [Unknown]
  - Suspected product quality issue [Unknown]
  - Throat irritation [Unknown]
  - Dry mouth [Unknown]
  - Dry throat [Unknown]
